FAERS Safety Report 21410775 (Version 1)
Quarter: 2022Q4

REPORT INFORMATION
  Report Type: Spontaneous
  Country: US (occurrence: None)
  Receive Date: 20221001
  Receipt Date: 20221001
  Transmission Date: 20230112
  Serious: Yes (Other)
  Sender: FDA-Public Use
  Company Number: None

PATIENT
  Age: 67 Year
  Sex: Male
  Weight: 67.5 kg

DRUGS (2)
  1. MINOXIDIL [Suspect]
     Active Substance: MINOXIDIL
     Indication: Hair growth abnormal
     Dosage: OTHER ROUTE : APPLYING TO HAIR LIKE APPLYING SHAMPOO;?
     Route: 050
  2. MINOXIDIL TOPICAL [Suspect]
     Active Substance: MINOXIDIL

REACTIONS (2)
  - Alopecia [None]
  - Alopecia [None]

NARRATIVE: CASE EVENT DATE: 20220927
